FAERS Safety Report 4352978-2 (Version None)
Quarter: 2004Q2

REPORT INFORMATION
  Report Type: 
  Country: None (occurrence: None)
  Receive Date: 20040403
  Receipt Date: 20040416
  Transmission Date: 20050107
  Serious: Yes (Other)
  Sender: FDA-Public Use
  Company Number: 2004026536

PATIENT
  Age: 65 Year
  Sex: Male

DRUGS (4)
  1. MAGNEX (CEFOPERAZONE, SULBACTAM) [Suspect]
     Indication: CELLULITIS
     Dosage: 2 GRAM (BID), INTRAVENOUS
     Route: 042
     Dates: start: 20040320, end: 20040414
  2. CEFOTAXIME SODIUM [Concomitant]
  3. INSULIN HUMAN (INSULIN HUMAN) [Concomitant]
  4. CORDALIN/OLD FORM/ (ETOFYLLINE, THEOPHYLLINE) [Concomitant]

REACTIONS (3)
  - AMPUTATION [None]
  - COUGH [None]
  - VOMITING [None]
